FAERS Safety Report 6839871-8 (Version None)
Quarter: 2010Q3

REPORT INFORMATION
  Report Type: 
  Country: None (occurrence: None)
  Receive Date: 20100714
  Receipt Date: 20100710
  Transmission Date: 20110219
  Serious: Yes (Other)
  Sender: FDA-Public Use
  Company Number: US-BAYER-201027697NA

PATIENT
  Age: 63 Year
  Sex: Female

DRUGS (6)
  1. BETASERON [Suspect]
     Indication: MULTIPLE SCLEROSIS
     Dosage: TOTAL DAILY DOSE: 2 MIU
     Route: 058
     Dates: start: 20100708
  2. OXYCONTIN [Concomitant]
     Indication: MYALGIA
  3. DILANTIN [Concomitant]
     Indication: MUSCLE SPASMS
  4. PREDNISONE [Concomitant]
  5. LORZAPAN [Concomitant]
  6. LASIX [Concomitant]

REACTIONS (3)
  - DYSPNOEA [None]
  - INCOHERENT [None]
  - PAIN [None]
